FAERS Safety Report 9010708 (Version 3)
Quarter: 2013Q1

REPORT INFORMATION
  Report Type: Spontaneous
  Country: US (occurrence: US)
  Receive Date: 20130109
  Receipt Date: 20130314
  Transmission Date: 20140127
  Serious: Yes (Hospitalization, Disabling, Other)
  Sender: FDA-Public Use
  Company Number: US-009507513-1103USA00994

PATIENT
  Sex: Male
  Weight: 94.79 kg

DRUGS (7)
  1. FOSAMAX [Suspect]
     Indication: OSTEOPENIA
     Dosage: 10 MG, UNK
     Route: 048
     Dates: start: 1998, end: 200010
  2. FOSAMAX [Suspect]
     Dosage: 70 MG, QW
     Route: 048
     Dates: start: 200010
  3. FOSAMAX [Suspect]
     Indication: OSTEOPENIA
     Dosage: 70 MG, QW
     Route: 048
     Dates: end: 200805
  4. FOSAMAX [Suspect]
     Dosage: 70 MG Q6
     Route: 048
  5. ALENDRONATE SODIUM [Suspect]
     Indication: OSTEOPENIA
     Dosage: 70 MG, UNK
     Route: 048
     Dates: start: 20041217, end: 200805
  6. CORTICOSTEROIDS (UNSPECIFIED) [Concomitant]
     Dosage: UNK
     Dates: start: 1983
  7. LOPRESSOR [Suspect]

REACTIONS (48)
  - Open reduction of fracture [Unknown]
  - Femur fracture [Not Recovered/Not Resolved]
  - Open reduction of fracture [Unknown]
  - Myocardial infarction [Unknown]
  - Cellulitis [Unknown]
  - Decubitus ulcer [Unknown]
  - Anaemia [Unknown]
  - Cardiac disorder [Not Recovered/Not Resolved]
  - Renal failure [Unknown]
  - Connective tissue disorder [Not Recovered/Not Resolved]
  - Rotator cuff repair [Unknown]
  - Coronary artery bypass [Unknown]
  - Skin graft [Unknown]
  - Gastrectomy [Unknown]
  - Rheumatoid arthritis [Not Recovered/Not Resolved]
  - Cardiac disorder [Not Recovered/Not Resolved]
  - Hip surgery [Unknown]
  - Gout [Recovering/Resolving]
  - Femur fracture [Recovered/Resolved]
  - Pyrexia [Unknown]
  - Hyperglycaemia [Unknown]
  - Hyperlipidaemia [Unknown]
  - Gouty arthritis [Unknown]
  - Trendelenburg^s symptom [Unknown]
  - Inappropriate schedule of drug administration [Unknown]
  - Gout [Unknown]
  - Protein urine [Unknown]
  - QRS axis abnormal [Unknown]
  - Electrocardiogram ST-T segment abnormal [Unknown]
  - Hypotension [Unknown]
  - Wound infection pseudomonas [Unknown]
  - Enterococcus test positive [Unknown]
  - Lymphoedema [Unknown]
  - Blood uric acid abnormal [Unknown]
  - Arthritis bacterial [Unknown]
  - Osteoarthritis [Unknown]
  - Cardiac failure congestive [Unknown]
  - Proteinuria [Unknown]
  - Diabetes mellitus [Unknown]
  - Staphylococcal sepsis [Unknown]
  - Abscess limb [Unknown]
  - Osteoporosis [Unknown]
  - Protein urine present [Unknown]
  - Dyspnoea exertional [Unknown]
  - Fall [Unknown]
  - Injury [Unknown]
  - Fracture nonunion [Unknown]
  - Local swelling [Unknown]
